FAERS Safety Report 4290188-8 (Version None)
Quarter: 2004Q1

REPORT INFORMATION
  Report Type: 
  Country: None (occurrence: None)
  Receive Date: 20040209
  Receipt Date: 20040203
  Transmission Date: 20041129
  Serious: Yes (Other)
  Sender: FDA-Public Use
  Company Number: US-JNJFOC-20031003780

PATIENT
  Age: 6 Year
  Sex: Male

DRUGS (3)
  1. CONCERTA [Suspect]
     Indication: ATTENTION DEFICIT/HYPERACTIVITY DISORDER
     Dosage: SEE IMAGE
     Route: 048
     Dates: start: 20030925
  2. ALBUTEROL [Concomitant]
  3. SINGULAIR (TABLETS) MONTELUKAST SODIUM TABLETS [Concomitant]

REACTIONS (2)
  - ANXIETY [None]
  - PICA [None]
